FAERS Safety Report 6284016-9 (Version None)
Quarter: 2009Q3

REPORT INFORMATION
  Report Type: 
  Country: None (occurrence: None)
  Receive Date: 20090727
  Receipt Date: 20090715
  Transmission Date: 20100115
  Serious: Yes (Hospitalization)
  Sender: FDA-Public Use
  Company Number: US-BIOGENIDEC-2009BI022372

PATIENT
  Age: 24 Year
  Sex: Female

DRUGS (6)
  1. TYSABRI [Suspect]
     Indication: MULTIPLE SCLEROSIS
     Dosage: LMP
     Route: 042
     Dates: start: 20080326, end: 20081017
  2. TYSABRI [Suspect]
     Route: 042
     Dates: start: 20090416
  3. VITAMIN TAB [Concomitant]
  4. FOLIC ACID [Concomitant]
  5. DHA SUPPLEMENT [Concomitant]
  6. PREDNISONE [Concomitant]

REACTIONS (2)
  - PRE-ECLAMPSIA [None]
  - PREGNANCY [None]
